FAERS Safety Report 5474933-1 (Version None)
Quarter: 2007Q4

REPORT INFORMATION
  Report Type: 
  Country: None (occurrence: None)
  Receive Date: 20071002
  Receipt Date: 20070920
  Transmission Date: 20080405
  Serious: Yes (Other)
  Sender: FDA-Public Use
  Company Number: GB-SHR-GB-2006-019701

PATIENT
  Age: 40 Year
  Sex: Female
  Weight: 57 kg

DRUGS (5)
  1. BETASERON [Suspect]
     Dosage: 8 MIU, UNK
     Route: 058
     Dates: start: 20050815, end: 20060714
  2. DETRUSITOL [Concomitant]
     Dosage: 4 MG, UNK
     Route: 048
     Dates: start: 20050601
  3. CITALOPRAM HYDROBROMIDE [Concomitant]
     Dosage: 20 MG, UNK
     Route: 048
     Dates: start: 20050601
  4. MOVICOL [Concomitant]
     Route: 048
     Dates: start: 20051201
  5. VITAMINS [Concomitant]
     Dosage: UNK, UNK
     Dates: start: 20050601

REACTIONS (4)
  - BODY TEMPERATURE INCREASED [None]
  - IMMOBILE [None]
  - MOBILITY DECREASED [None]
  - PALINDROMIC RHEUMATISM [None]
